FAERS Safety Report 9776325 (Version 1)
Quarter: 2013Q4

REPORT INFORMATION
  Report Type: Spontaneous
  Country: GB (occurrence: GB)
  Receive Date: 20131220
  Receipt Date: 20131220
  Transmission Date: 20140711
  Serious: Yes (Other)
  Sender: FDA-Public Use
  Company Number: GB-ABBVIE-13P-167-1179433-00

PATIENT
  Age: 66 Year
  Sex: Male

DRUGS (1)
  1. HUMIRA [Suspect]
     Indication: PRODUCT USED FOR UNKNOWN INDICATION

REACTIONS (5)
  - Anal haemorrhage [Unknown]
  - Gastrointestinal inflammation [Unknown]
  - Dyspepsia [Unknown]
  - Flatulence [Unknown]
  - Diarrhoea [Unknown]
